FAERS Safety Report 5903211-9 (Version None)
Quarter: 2008Q3

REPORT INFORMATION
  Report Type: 
  Country: None (occurrence: None)
  Receive Date: 20080930
  Receipt Date: 20080926
  Transmission Date: 20090109
  Serious: Yes (Other)
  Sender: FDA-Public Use
  Company Number: GB-BRISTOL-MYERS SQUIBB COMPANY-13960810

PATIENT
  Age: 43 Year
  Sex: Male

DRUGS (5)
  1. REYATAZ [Suspect]
     Dates: start: 20071029
  2. IBUPROFENE UPSA [Suspect]
     Dates: start: 20071029
  3. SEPTRIN [Concomitant]
  4. TRUVADA [Concomitant]
  5. ACYCLOVIR [Concomitant]

REACTIONS (5)
  - INTENTIONAL OVERDOSE [None]
  - LIVER FUNCTION TEST ABNORMAL [None]
  - PYREXIA [None]
  - SOMNOLENCE [None]
  - SUICIDE ATTEMPT [None]
